FAERS Safety Report 8394808-8 (Version None)
Quarter: 2012Q2

REPORT INFORMATION
  Report Type: 
  Country: None (occurrence: None)
  Receive Date: 20120530
  Receipt Date: 20120522
  Transmission Date: 20120825
  Serious: Yes (Other)
  Sender: FDA-Public Use
  Company Number: US-BRISTOL-MYERS SQUIBB COMPANY-16616120

PATIENT
  Age: 57 Year
  Sex: Female

DRUGS (1)
  1. ORENCIA [Suspect]
     Dosage: LAST INF 2 MONTHS AGO,FOR 2-3 YEARS
     Route: 042

REACTIONS (4)
  - FOOT OPERATION [None]
  - DRUG DOSE OMISSION [None]
  - ENDODONTIC PROCEDURE [None]
  - POST PROCEDURAL INFECTION [None]
